FAERS Safety Report 13040473 (Version 1)
Quarter: 2016Q4

REPORT INFORMATION
  Report Type: Spontaneous
  Country: US (occurrence: US)
  Receive Date: 20161219
  Receipt Date: 20161219
  Transmission Date: 20170207
  Serious: No
  Sender: FDA-Public Use
  Company Number: US-SA-2016SA189503

PATIENT
  Age: 73 Year
  Sex: Male
  Weight: 87.4 kg

DRUGS (12)
  1. AMLODIPINE [Concomitant]
     Active Substance: AMLODIPINE BESYLATE
     Route: 048
  2. NORCO [Concomitant]
     Active Substance: ACETAMINOPHEN\HYDROCODONE BITARTRATE
     Dosage: STRENGTH: 10 MG/ 325 MG
     Route: 048
  3. PLAVIX [Suspect]
     Active Substance: CLOPIDOGREL BISULFATE
     Route: 065
  4. ASA [Concomitant]
     Active Substance: ASPIRIN
     Route: 048
  5. DOCUSATE SODIUM W/SENNA [Concomitant]
     Active Substance: DOCUSATE SODIUM\SENNA LEAF
     Indication: CONSTIPATION
     Dosage: STRENGTH: 50 MG- 8.6 MG?DOSE: 1 TAB TWICE A DAY, AS NEEDED
     Route: 048
  6. METOPROLOL. [Concomitant]
     Active Substance: METOPROLOL
     Route: 048
  7. PROMETHAZINE [Concomitant]
     Active Substance: PROMETHAZINE\PROMETHAZINE HYDROCHLORIDE
     Dosage: ROUTE: INTRAVENOUS ORDERED IV PUSH
     Dates: end: 20150709
  8. TICLID [Concomitant]
     Active Substance: TICLOPIDINE HYDROCHLORIDE
  9. CALCIUM CARBONATE. [Concomitant]
     Active Substance: CALCIUM CARBONATE
     Indication: DYSPEPSIA
     Dosage: STRENGTH: 500 MG?DOSE: 1 TAB 4 TIMES/ DAY, AS NEEDED
     Route: 048
  10. HEPARIN [Concomitant]
     Active Substance: HEPARIN SODIUM
  11. CALCIUM CARBONATE. [Concomitant]
     Active Substance: CALCIUM CARBONATE
     Indication: DYSPEPSIA
     Dosage: STRENGTH: 500 MG?DOSE: 1 TAB 4 TIMES/ DAY, AS NEEDED
     Route: 048
  12. QUININE [Concomitant]
     Active Substance: QUININE

REACTIONS (1)
  - Swelling [Unknown]
